FAERS Safety Report 15948775 (Version 2)
Quarter: 2019Q1

REPORT INFORMATION
  Report Type: Spontaneous
  Country: US (occurrence: US)
  Receive Date: 20190211
  Receipt Date: 20190312
  Transmission Date: 20190417
  Serious: No
  Sender: FDA-Public Use
  Company Number: US-STRONGBRIDGE BIOPHARMA-2019-STR-000026

PATIENT
  Age: 13 Year
  Sex: Female

DRUGS (2)
  1. KEVEYIS [Suspect]
     Active Substance: DICHLORPHENAMIDE
     Dosage: 1 DF, BID
     Route: 048
     Dates: start: 20181020, end: 20190115
  2. KEVEYIS [Suspect]
     Active Substance: DICHLORPHENAMIDE
     Indication: FAMILIAL PERIODIC PARALYSIS
     Dosage: 0.5 DF, BID
     Route: 048
     Dates: start: 20190115, end: 2019

REACTIONS (7)
  - Myalgia [Not Recovered/Not Resolved]
  - Asthenia [Recovering/Resolving]
  - Cognitive disorder [Recovering/Resolving]
  - Feeling abnormal [Recovering/Resolving]
  - Disease recurrence [Not Recovered/Not Resolved]
  - Prescribed underdose [Recovered/Resolved]
  - Feeling abnormal [Not Recovered/Not Resolved]

NARRATIVE: CASE EVENT DATE: 201811
